FAERS Safety Report 21182888 (Version 3)
Quarter: 2022Q4

REPORT INFORMATION
  Report Type: Spontaneous
  Country: DE (occurrence: DE)
  Receive Date: 20220808
  Receipt Date: 20221012
  Transmission Date: 20230113
  Serious: Yes (Hospitalization, Other)
  Sender: FDA-Public Use
  Company Number: DE-NOVARTISPH-NVSC2022DE177800

PATIENT
  Sex: Male

DRUGS (2)
  1. KESIMPTA [Suspect]
     Active Substance: OFATUMUMAB
     Indication: Multiple sclerosis
     Dosage: 20 MG (20/0.4 MG/ML)
     Route: 058
     Dates: start: 20220614
  2. KESIMPTA [Suspect]
     Active Substance: OFATUMUMAB
     Dosage: 20 MG
     Route: 058
     Dates: start: 20220628

REACTIONS (30)
  - Cholecystitis [Recovered/Resolved]
  - Cholestasis [Recovered/Resolved]
  - Cholelithiasis [Recovered/Resolved]
  - Venous oxygen partial pressure decreased [Unknown]
  - Atrial fibrillation [Unknown]
  - Hyperbilirubinaemia [Unknown]
  - Acquired diaphragmatic eventration [Unknown]
  - Oxygen saturation decreased [Unknown]
  - Liver function test increased [Unknown]
  - Inflammatory marker increased [Recovering/Resolving]
  - Blood lactate dehydrogenase increased [Unknown]
  - Blood alkaline phosphatase increased [Unknown]
  - Diaphragmatic hernia [Unknown]
  - Gastrooesophageal reflux disease [Unknown]
  - Lymphadenopathy [Unknown]
  - Blood sodium decreased [Recovered/Resolved]
  - Low density lipoprotein increased [Unknown]
  - Carbon dioxide increased [Unknown]
  - Carboxyhaemoglobin increased [Unknown]
  - Red blood cell count decreased [Unknown]
  - Haematocrit decreased [Unknown]
  - Haemoglobin decreased [Unknown]
  - White blood cell count increased [Unknown]
  - Neutrophil count increased [Unknown]
  - Lymphocyte count decreased [Unknown]
  - Monocyte count increased [Unknown]
  - Eosinophil count decreased [Unknown]
  - Immature granulocyte count increased [Unknown]
  - Fibrin D dimer increased [Unknown]
  - C-reactive protein increased [Unknown]

NARRATIVE: CASE EVENT DATE: 20220708
